FAERS Safety Report 4647347-1 (Version None)
Quarter: 2005Q2

REPORT INFORMATION
  Report Type: 
  Country: None (occurrence: None)
  Receive Date: 20050426
  Receipt Date: 20050426
  Transmission Date: 20051028
  Serious: Yes (Hospitalization)
  Sender: FDA-Public Use
  Company Number: None

PATIENT
  Sex: Female
  Weight: 68.0396 kg

DRUGS (1)
  1. GABITRIL [Suspect]
     Indication: BACK PAIN
     Dosage: 1   3  ORAL
     Route: 048
     Dates: start: 20040601, end: 20050305

REACTIONS (4)
  - CONVULSION [None]
  - INCOHERENT [None]
  - LOSS OF CONSCIOUSNESS [None]
  - TRANSIENT ISCHAEMIC ATTACK [None]
